FAERS Safety Report 7244334-4 (Version None)
Quarter: 2011Q1

REPORT INFORMATION
  Report Type: 
  Country: None (occurrence: None)
  Receive Date: 20110125
  Receipt Date: 20110117
  Transmission Date: 20110831
  Serious: Yes (Death, Life-Threatening, Hospitalization)
  Sender: FDA-Public Use
  Company Number: JP-EISAI INC-E3810-04276-SPO-JP

PATIENT
  Age: 81 Year
  Sex: Female

DRUGS (20)
  1. LANSOPRAZOLE [Suspect]
     Dates: end: 20101128
  2. SIGMART [Concomitant]
     Dates: end: 20101128
  3. PERORIC [Concomitant]
     Dates: end: 20101128
  4. RAMITALATE-L [Concomitant]
     Dates: end: 20101128
  5. GRIMAC [Concomitant]
     Dates: end: 20101128
  6. LOXOPROFEN SODIUM HYDRATE [Suspect]
     Dates: end: 20101128
  7. KAMAG G [Concomitant]
     Dates: end: 20101128
  8. SENNOSIDE [Concomitant]
     Dates: end: 20101128
  9. VOLTAREN [Concomitant]
     Dates: end: 20101128
  10. CETIRIZINE HYDROCHLORIDE [Concomitant]
     Dates: end: 20101128
  11. PARIET (RABEPRAZOLE) [Suspect]
     Route: 048
     Dates: end: 20101128
  12. VONAFEC [Suspect]
     Dates: end: 20101128
  13. PARULEON [Concomitant]
     Dates: end: 20101128
  14. KETAS [Concomitant]
     Route: 048
     Dates: end: 20101128
  15. DIOVAN [Suspect]
     Dates: end: 20101128
  16. ZOLOFT [Concomitant]
     Dates: end: 20101128
  17. FOSAMAC 5MG [Concomitant]
     Dates: end: 20101128
  18. LOCHOL [Suspect]
     Dates: end: 20101128
  19. SODIUM PICOSULFATE HYDRATE [Concomitant]
     Dates: end: 20101128
  20. ATARAX [Concomitant]
     Dates: end: 20101128

REACTIONS (1)
  - INTERSTITIAL LUNG DISEASE [None]
